FAERS Safety Report 10406390 (Version 1)
Quarter: 2014Q3

REPORT INFORMATION
  Report Type: Spontaneous
  Country: NL (occurrence: None)
  Receive Date: 20140821
  Receipt Date: 20140821
  Transmission Date: 20150326
  Serious: Yes (Death, Congenital Anomaly)
  Sender: FDA-Public Use
  Company Number: 2014COV00093

PATIENT

DRUGS (9)
  1. CLEMASTINE [Concomitant]
     Active Substance: CLEMASTINE
  2. ACETYLSALICYLIC ACID [Concomitant]
     Active Substance: ASPIRIN
  3. OMEPRAZOLE. [Concomitant]
     Active Substance: OMEPRAZOLE
  4. PLAQUENIL [Suspect]
     Active Substance: HYDROXYCHLOROQUINE SULFATE
     Indication: FOETAL EXPOSURE DURING PREGNANCY
     Dosage: 300 MG, 1X/DAY, TRANSPLACENTAL ?
     Route: 064
  5. FOLIC ACID. [Concomitant]
     Active Substance: FOLIC ACID
  6. NADROPARIN [Concomitant]
     Active Substance: NADROPARIN
  7. SERTRALINE [Concomitant]
     Active Substance: SERTRALINE HYDROCHLORIDE
  8. CALCIUM/COLECALCIFEROL [Concomitant]
     Active Substance: CALCIUM\CHOLECALCIFEROL
  9. AZATHIOPRINE. [Suspect]
     Active Substance: AZATHIOPRINE
     Indication: FOETAL EXPOSURE DURING PREGNANCY
     Route: 064

REACTIONS (5)
  - Maternal drugs affecting foetus [None]
  - Hydrops foetalis [None]
  - Foetal death [None]
  - Cardiac failure [None]
  - Cleft palate [None]
